FAERS Safety Report 19258711 (Version 1)
Quarter: 2021Q2

REPORT INFORMATION
  Report Type: Spontaneous
  Country: US (occurrence: US)
  Receive Date: 20210514
  Receipt Date: 20210514
  Transmission Date: 20210717
  Serious: No
  Sender: FDA-Public Use
  Company Number: None

PATIENT
  Age: 40 Year
  Sex: Female
  Weight: 107.1 kg

DRUGS (1)
  1. EMGALITY [Suspect]
     Active Substance: GALCANEZUMAB-GNLM
     Indication: MIGRAINE
     Dosage: ?          QUANTITY:2 INJECTION(S);?
     Route: 058
     Dates: start: 20210513, end: 20210513

REACTIONS (5)
  - Nausea [None]
  - Dizziness [None]
  - Asthenia [None]
  - Irritable bowel syndrome [None]
  - Disorientation [None]

NARRATIVE: CASE EVENT DATE: 20210513
